FAERS Safety Report 7783467-0 (Version None)
Quarter: 2011Q3

REPORT INFORMATION
  Report Type: 
  Country: None (occurrence: None)
  Receive Date: 20110928
  Receipt Date: 20110922
  Transmission Date: 20111222
  Serious: Yes (Hospitalization)
  Sender: FDA-Public Use
  Company Number: JP-BAXTER-2011BH030204

PATIENT
  Age: 60 Year

DRUGS (1)
  1. CYCLOPHOSPHAMIDE [Suspect]
     Indication: SCLERODERMA
     Route: 041
     Dates: start: 20110101

REACTIONS (1)
  - HEPATIC FUNCTION ABNORMAL [None]
